FAERS Safety Report 12386280 (Version 2)
Quarter: 2016Q2

REPORT INFORMATION
  Report Type: Spontaneous
  Country: US (occurrence: US)
  Receive Date: 20160519
  Receipt Date: 20160601
  Transmission Date: 20160815
  Serious: Yes (Hospitalization)
  Sender: FDA-Public Use
  Company Number: PHEH2016US012303

PATIENT
  Sex: Male
  Weight: 87.35 kg

DRUGS (1)
  1. GLEEVEC [Suspect]
     Active Substance: IMATINIB MESYLATE
     Indication: CHRONIC MYELOID LEUKAEMIA
     Dosage: 400 MG, QD
     Route: 048
     Dates: start: 201304

REACTIONS (10)
  - Nausea [Recovered/Resolved]
  - Myalgia [Recovered/Resolved]
  - Pain in extremity [Unknown]
  - Blood pressure systolic increased [Unknown]
  - Gastritis [Recovered/Resolved]
  - Vomiting [Recovered/Resolved]
  - Peripheral swelling [Unknown]
  - Dizziness [Unknown]
  - Diarrhoea [Unknown]
  - Abdominal pain [Unknown]
